FAERS Safety Report 24815785 (Version 1)
Quarter: 2025Q1

REPORT INFORMATION
  Report Type: Report from Study
  Country: US (occurrence: US)
  Receive Date: 20250107
  Receipt Date: 20250107
  Transmission Date: 20250409
  Serious: Yes (Hospitalization, Other)
  Sender: ABBVIE
  Company Number: US-ABBVIE-5947236

PATIENT
  Age: 63 Year
  Sex: Male
  Weight: 98.429 kg

DRUGS (6)
  1. HUMIRA [Suspect]
     Active Substance: ADALIMUMAB
     Indication: Rheumatoid arthritis
     Dosage: FORM STRENGTH: 40 MG
     Route: 058
     Dates: start: 2010
  2. HUMIRA [Suspect]
     Active Substance: ADALIMUMAB
     Route: 058
  3. HUMIRA [Suspect]
     Active Substance: ADALIMUMAB
     Route: 058
  4. LOSARTAN [Concomitant]
     Active Substance: LOSARTAN
     Indication: Product used for unknown indication
  5. AMLODIPINE [Concomitant]
     Active Substance: AMLODIPINE BESYLATE
     Indication: Product used for unknown indication
  6. METOPROLOL [Concomitant]
     Active Substance: METOPROLOL
     Indication: Product used for unknown indication

REACTIONS (11)
  - Vascular procedure complication [Recovered/Resolved]
  - Sinusitis fungal [Recovered/Resolved]
  - Surgery [Unknown]
  - Pharyngeal polyp [Recovering/Resolving]
  - Peripheral nerve operation [Recovered/Resolved]
  - Dysphagia [Recovered/Resolved]
  - Hiatus hernia [Recovered/Resolved]
  - Sleep apnoea syndrome [Recovering/Resolving]
  - Coma [Recovered/Resolved]
  - Osteoarthritis [Recovering/Resolving]
  - Sinusitis [Recovered/Resolved]

NARRATIVE: CASE EVENT DATE: 20200101
